FAERS Safety Report 7976164-X (Version None)
Quarter: 2011Q4

REPORT INFORMATION
  Report Type: 
  Country: None (occurrence: None)
  Receive Date: 20111213
  Receipt Date: 20111013
  Transmission Date: 20120403
  Serious: Yes (Other)
  Sender: FDA-Public Use
  Company Number: US-AMGEN-USASP2011051643

PATIENT
  Age: 31 Year
  Sex: Male

DRUGS (2)
  1. ENBREL [Suspect]
     Indication: PSORIASIS
     Dosage: 50 MG, 2 TIMES/WK
     Dates: start: 20110831, end: 20110928
  2. CLOBEX                             /00337102/ [Concomitant]
     Dosage: UNK

REACTIONS (6)
  - PAIN [None]
  - PLATELET COUNT DECREASED [None]
  - HEADACHE [None]
  - WHITE BLOOD CELL COUNT DECREASED [None]
  - MALAISE [None]
  - FATIGUE [None]
